FAERS Safety Report 9553408 (Version 1)
Quarter: 2013Q3

REPORT INFORMATION
  Report Type: Spontaneous
  Country: US (occurrence: None)
  Receive Date: 20130724
  Receipt Date: 20130724
  Transmission Date: 20140515
  Serious: Yes (Hospitalization)
  Sender: FDA-Public Use
  Company Number: PHEH2012US022200

PATIENT
  Age: 36 Year
  Sex: Female
  Weight: 65.8 kg

DRUGS (3)
  1. GLEEVEC [Suspect]
     Route: 048
  2. LISINOPRIL AND HYDROCHLOROTHIAZIDE (HYDROCHLOROTHIAZIDE, LISINOPRIL) [Concomitant]
  3. ZERIT (STAVUDINE) [Concomitant]

REACTIONS (1)
  - Generalised oedema [None]
